FAERS Safety Report 9116272 (Version 1)
Quarter: 2013Q1

REPORT INFORMATION
  Report Type: Spontaneous
  Country: FR (occurrence: FR)
  Receive Date: 20130225
  Receipt Date: 20130225
  Transmission Date: 20140127
  Serious: Yes (Other)
  Sender: FDA-Public Use
  Company Number: FR-ELI_LILLY_AND_COMPANY-FR201302005162

PATIENT
  Age: 30 Year
  Sex: Male

DRUGS (5)
  1. CYMBALTA [Suspect]
     Dosage: 60 MG, QD
     Route: 048
  2. CYMBALTA [Suspect]
     Dosage: 90 MG, QD
     Route: 048
  3. ATARAX [Concomitant]
  4. CELESTA [Concomitant]
  5. ABILIFY [Concomitant]

REACTIONS (1)
  - Hepatitis cholestatic [Unknown]
